FAERS Safety Report 24292502 (Version 1)
Quarter: 2024Q3

REPORT INFORMATION
  Report Type: Spontaneous
  Country: US (occurrence: None)
  Receive Date: 20240906
  Receipt Date: 20240906
  Transmission Date: 20241017
  Serious: Yes (Hospitalization)
  Sender: Public
  Company Number: None

PATIENT
  Sex: Female

DRUGS (9)
  1. OXBRYTA [Suspect]
     Active Substance: VOXELOTOR
     Indication: Sickle cell disease
     Dosage: FREQUENCY : DAILY;?
     Route: 048
     Dates: start: 202206
  2. METHOCARBAMOL [Concomitant]
  3. CELEBREX [Concomitant]
  4. Dilaudic [Concomitant]
  5. AMOXICILLIN [Concomitant]
     Active Substance: AMOXICILLIN
  6. DULOXETINE [Concomitant]
  7. Protonix [Concomitant]
  8. Onsansetron [Concomitant]
  9. HYDROXYUREA [Concomitant]

REACTIONS (1)
  - Sickle cell anaemia with crisis [None]
